FAERS Safety Report 9215534 (Version 2)
Quarter: 2013Q2

REPORT INFORMATION
  Report Type: Spontaneous
  Country: US (occurrence: US)
  Receive Date: 20130407
  Receipt Date: 20130516
  Transmission Date: 20140414
  Serious: Yes (Hospitalization, Other)
  Sender: FDA-Public Use
  Company Number: US-MERCK-1304USA000719

PATIENT
  Sex: Female

DRUGS (18)
  1. SINGULAIR [Suspect]
     Indication: ASTHMA
     Dosage: UNK
     Dates: start: 2012, end: 201211
  2. PEPCID [Suspect]
     Route: 048
  3. MONTELUKAST SODIUM [Suspect]
     Dosage: UNK
     Route: 048
     Dates: start: 2012, end: 201211
  4. XOPENEX [Concomitant]
  5. ALUPENT [Concomitant]
  6. LYRICA [Concomitant]
  7. TOPAMAX [Concomitant]
  8. OMEPRAZOLE [Concomitant]
  9. DICYCLOMINE HYDROCHLORIDE [Concomitant]
  10. CARBAMAZEPINE [Suspect]
  11. DEPAKOTE [Suspect]
  12. DEPAKENE [Suspect]
  13. NEURONTIN [Suspect]
  14. GABAPENTIN [Suspect]
  15. TOPIRAMATE [Suspect]
  16. LAMICTAL [Suspect]
  17. ZONEGRAN [Suspect]
  18. PROTONIX [Suspect]

REACTIONS (6)
  - Convulsion [Not Recovered/Not Resolved]
  - Hypersensitivity [Not Recovered/Not Resolved]
  - Weight decreased [Recovered/Resolved]
  - Renal disorder [Recovered/Resolved]
  - Weight increased [Not Recovered/Not Resolved]
  - Drug ineffective [Not Recovered/Not Resolved]
